FAERS Safety Report 7405815-3 (Version None)
Quarter: 2011Q2

REPORT INFORMATION
  Report Type: 
  Country: None (occurrence: None)
  Receive Date: 20110411
  Receipt Date: 20110404
  Transmission Date: 20111010
  Serious: Yes (Disabling, Other)
  Sender: FDA-Public Use
  Company Number: PL-ROCHE-769813

PATIENT
  Age: 46 Year
  Sex: Female

DRUGS (1)
  1. RIVOTRIL [Suspect]
     Indication: MIGRAINE
     Route: 030
     Dates: start: 20051020

REACTIONS (5)
  - HYPERAESTHESIA [None]
  - PNEUMONIA [None]
  - BRAIN STEM INFARCTION [None]
  - PARALYSIS [None]
  - RESPIRATORY FAILURE [None]
